FAERS Safety Report 5274493-4 (Version None)
Quarter: 2007Q1

REPORT INFORMATION
  Report Type: 
  Country: None (occurrence: None)
  Receive Date: 20070323
  Receipt Date: 20070313
  Transmission Date: 20070707
  Serious: Yes (Other)
  Sender: FDA-Public Use
  Company Number: US-PFIZER INC-2007019753

PATIENT
  Age: 44 Year
  Sex: Female
  Weight: 81.2 kg

DRUGS (4)
  1. CHANTIX [Suspect]
     Indication: EX-SMOKER
  2. LEXAPRO [Concomitant]
  3. SEROQUEL [Concomitant]
  4. AMBIEN [Concomitant]

REACTIONS (11)
  - ABDOMINAL PAIN UPPER [None]
  - ASTHENIA [None]
  - BIOPSY BREAST [None]
  - DISTURBANCE IN ATTENTION [None]
  - DIZZINESS [None]
  - DYSGEUSIA [None]
  - DYSURIA [None]
  - EUPHORIC MOOD [None]
  - MALAISE [None]
  - TREMOR [None]
  - VERTIGO [None]
